FAERS Safety Report 17509802 (Version 1)
Quarter: 2020Q1

REPORT INFORMATION
  Report Type: Spontaneous
  Country: PL (occurrence: PL)
  Receive Date: 20200306
  Receipt Date: 20200306
  Transmission Date: 20200409
  Serious: Yes (Life-Threatening)
  Sender: FDA-Public Use
  Company Number: PL-MYLANLABS-VALE-2008-5677

PATIENT
  Sex: Female
  Weight: 76 kg

DRUGS (1)
  1. HYDROCORTISONE INJECT [Suspect]
     Active Substance: HYDROCORTISONE
     Indication: ASTHMA
     Dosage: 100 MILLIGRAM
     Route: 042
     Dates: start: 20080808, end: 20080808

REACTIONS (1)
  - Respiratory arrest [Recovered/Resolved]

NARRATIVE: CASE EVENT DATE: 20080808
